FAERS Safety Report 10371590 (Version 1)
Quarter: 2014Q3

REPORT INFORMATION
  Report Type: Spontaneous
  Country: US (occurrence: None)
  Receive Date: 20140807
  Receipt Date: 20140807
  Transmission Date: 20150326
  Serious: No
  Sender: FDA-Public Use
  Company Number: None

PATIENT
  Age: 71 Year
  Sex: Female
  Weight: 72.58 kg

DRUGS (6)
  1. DULERA [Suspect]
     Active Substance: FORMOTEROL FUMARATE DIHYDRATE\MOMETASONE FUROATE
     Indication: ASTHMA
     Dosage: 200 MCG/5 MG?2 PUFFS DAILY ?MOUTH
     Route: 048
     Dates: end: 20140606
  2. SUCRAFATE [Concomitant]
  3. NEXIUM [Concomitant]
     Active Substance: ESOMEPRAZOLE MAGNESIUM
  4. BENAZEP [Concomitant]
  5. FUROSEMIDE. [Concomitant]
     Active Substance: FUROSEMIDE
  6. AMLODIPINE [Concomitant]
     Active Substance: AMLODIPINE BESYLATE

REACTIONS (11)
  - Oropharyngeal pain [None]
  - Dysphonia [None]
  - Cardiac disorder [None]
  - Headache [None]
  - Muscle spasms [None]
  - Dyspnoea [None]
  - Asthenia [None]
  - Vision blurred [None]
  - Speech disorder [None]
  - Skin disorder [None]
  - Chest pain [None]
